FAERS Safety Report 7706612-1 (Version None)
Quarter: 2011Q3

REPORT INFORMATION
  Report Type: 
  Country: None (occurrence: None)
  Receive Date: 20110824
  Receipt Date: 20110812
  Transmission Date: 20111222
  Serious: Yes (Hospitalization)
  Sender: FDA-Public Use
  Company Number: US-ELI_LILLY_AND_COMPANY-US201108000421

PATIENT
  Sex: Female

DRUGS (10)
  1. FORTEO [Suspect]
     Indication: OSTEOPOROSIS
     Dosage: 20 UG, QD
     Route: 065
  2. VITAMIN D [Concomitant]
  3. FORTEO [Suspect]
     Dosage: 20 UG, QD
     Route: 065
  4. DIURETICS [Concomitant]
  5. RAMIPRIL [Concomitant]
  6. OS-CAL [Concomitant]
  7. TOPROL-XL [Concomitant]
  8. OXYCONTIN [Concomitant]
  9. DILAUDID [Concomitant]
  10. CALCIUM CARBONATE [Concomitant]

REACTIONS (4)
  - PYREXIA [None]
  - PNEUMONIA [None]
  - COUGH [None]
  - EYE DISORDER [None]
